FAERS Safety Report 7333865-4 (Version None)
Quarter: 2011Q1

REPORT INFORMATION
  Report Type: 
  Country: None (occurrence: None)
  Receive Date: 20110307
  Receipt Date: 20110224
  Transmission Date: 20110831
  Serious: Yes (Hospitalization)
  Sender: FDA-Public Use
  Company Number: US-BIOGENIDEC-2011BI002145

PATIENT
  Age: 57 Year
  Sex: Female
  Weight: 58 kg

DRUGS (1)
  1. TYSABRI [Suspect]
     Indication: MULTIPLE SCLEROSIS
     Route: 042
     Dates: start: 20080711, end: 20101201

REACTIONS (11)
  - PAIN IN EXTREMITY [None]
  - ROTATOR CUFF SYNDROME [None]
  - NECK PAIN [None]
  - MUSCLE DISORDER [None]
  - CERVICAL SPINAL STENOSIS [None]
  - INSOMNIA [None]
  - NASOPHARYNGITIS [None]
  - INFLUENZA [None]
  - BONE DISORDER [None]
  - PROCEDURAL PAIN [None]
  - HEADACHE [None]
